FAERS Safety Report 7792502-5 (Version None)
Quarter: 2011Q3

REPORT INFORMATION
  Report Type: 
  Country: None (occurrence: None)
  Receive Date: 20110930
  Receipt Date: 20110930
  Transmission Date: 20111222
  Serious: No
  Sender: FDA-Public Use
  Company Number: None

PATIENT
  Age: 19 Year
  Sex: Female
  Weight: 59.8748 kg

DRUGS (5)
  1. BCP [Concomitant]
  2. ADVAIR DISKUS 100/50 [Concomitant]
  3. ADDERALL 5 [Concomitant]
  4. ADDERALL XR 10 [Concomitant]
  5. FLUOXETINE [Suspect]
     Indication: DEPRESSION
     Dosage: 10 MG ONE PO QD
     Route: 048
     Dates: start: 20110816, end: 20110905

REACTIONS (3)
  - DEPRESSION [None]
  - SUICIDAL IDEATION [None]
  - EMOTIONAL DISORDER [None]
